FAERS Safety Report 9162854 (Version 1)
Quarter: 2013Q1

REPORT INFORMATION
  Report Type: Spontaneous
  Country: GR (occurrence: GR)
  Receive Date: 20130314
  Receipt Date: 20130314
  Transmission Date: 20140127
  Serious: Yes (Other)
  Sender: FDA-Public Use
  Company Number: GR-PFIZER INC-2013081779

PATIENT
  Age: 66 Year
  Sex: Male

DRUGS (6)
  1. LYRICA [Suspect]
     Indication: QUADRIPLEGIA
     Dosage: 150 MG, 2X/DAY
     Dates: start: 201103
  2. LYRICA [Suspect]
     Indication: NEURALGIA
  3. EFEXOR XR [Suspect]
     Indication: QUADRIPLEGIA
     Dosage: 75 MG, 1X/DAY
     Dates: start: 201103
  4. EFEXOR XR [Suspect]
     Indication: NEURALGIA
  5. ZANTAC [Concomitant]
     Dosage: UNK
  6. LYRINEL [Concomitant]
     Dosage: UNK

REACTIONS (5)
  - Hallucinations, mixed [Not Recovered/Not Resolved]
  - Suffocation feeling [Not Recovered/Not Resolved]
  - Stress [Not Recovered/Not Resolved]
  - Agitation [Not Recovered/Not Resolved]
  - Off label use [Not Recovered/Not Resolved]
